FAERS Safety Report 8267671-3 (Version None)
Quarter: 2012Q2

REPORT INFORMATION
  Report Type: 
  Country: None (occurrence: None)
  Receive Date: 20120404
  Receipt Date: 20120322
  Transmission Date: 20120825
  Serious: Yes (Life-Threatening, Hospitalization)
  Sender: FDA-Public Use
  Company Number: JP-2012-10217

PATIENT
  Age: 41 Year
  Sex: Male
  Weight: 95 kg

DRUGS (16)
  1. URINORM (BENZBROMARONE) [Concomitant]
  2. DIOVAN [Concomitant]
  3. GUANABENZ ACETATE [Concomitant]
  4. AZUNOL (SODIUM GUALENATE) [Concomitant]
  5. COLCHICINE [Concomitant]
  6. JUSO (SODIUM BICARBONATE) [Concomitant]
  7. ACETAMINOPHEN [Concomitant]
  8. URALYT (POTASSIUM CITRATE, SODIUM CITRATE ACID) [Concomitant]
  9. OMEPRAZOLE [Concomitant]
  10. TRANEXAMIC ACID [Concomitant]
  11. BANAN [Concomitant]
  12. OPC-41061 (TOLVAPTAN) TABLET [Suspect]
     Indication: CONGENITAL CYSTIC KIDNEY DISEASE
     Dosage: 90 MG MILLIGRAM(S), DAILY DOSE, ORAL
     Route: 048
     Dates: start: 20110309, end: 20120108
  13. AMLODIPINE BESYLATE [Concomitant]
  14. METHYCOOL (MECOBALAMIN) [Concomitant]
  15. ALLOPURINOL [Concomitant]
  16. MUCODYNE (CARBOCISTEINE) [Concomitant]

REACTIONS (6)
  - ALANINE AMINOTRANSFERASE INCREASED [None]
  - ASPARTATE AMINOTRANSFERASE INCREASED [None]
  - RENAL CYST INFECTION [None]
  - COAGULOPATHY [None]
  - SEPSIS [None]
  - BLOOD PRESSURE INCREASED [None]
